FAERS Safety Report 7682478-3 (Version None)
Quarter: 2011Q3

REPORT INFORMATION
  Report Type: 
  Country: None (occurrence: None)
  Receive Date: 20110810
  Receipt Date: 20110725
  Transmission Date: 20111222
  Serious: Yes (Congenital Anomaly)
  Sender: FDA-Public Use
  Company Number: 2011R1-43817

PATIENT

DRUGS (6)
  1. BUDESONIDE [Concomitant]
  2. DIHYDROCODEINE BITARTRATE INJ [Concomitant]
  3. TERBUTALINE SULFATE [Concomitant]
  4. FOLIC ACID [Concomitant]
  5. LAMOTRIGINE [Concomitant]
  6. TOPIRAMATE [Suspect]
     Indication: MATERNAL EXPOSURE DURING PREGNANCY
     Dosage: TRANSPLACENTAL
     Route: 064

REACTIONS (2)
  - MATERNAL DRUGS AFFECTING FOETUS [None]
  - POLYDACTYLY [None]
